FAERS Safety Report 7771551-7 (Version None)
Quarter: 2011Q3

REPORT INFORMATION
  Report Type: 
  Country: None (occurrence: None)
  Receive Date: 20110922
  Receipt Date: 20110318
  Transmission Date: 20111222
  Serious: No
  Sender: FDA-Public Use
  Company Number: US-ASTRAZENECA-2007UW04497

PATIENT
  Age: 54 Year
  Sex: Female
  Weight: 101.6 kg

DRUGS (9)
  1. FLUOXETINE [Concomitant]
     Dosage: 10 MG TO 20 MG
     Dates: start: 20030324
  2. ALPRAZOLAM [Concomitant]
     Dosage: 0.5 MG-150 MG
     Dates: start: 20030422
  3. SEROQUEL [Suspect]
     Indication: DEPRESSION
     Route: 048
     Dates: start: 20030324
  4. SEROQUEL [Suspect]
     Dosage: 150 MG-300 MG
     Route: 048
     Dates: start: 20030324, end: 20060504
  5. SEROQUEL [Suspect]
     Dosage: 150 MG-300 MG
     Route: 048
     Dates: start: 20030324, end: 20060504
  6. SEROQUEL [Suspect]
     Indication: SLEEP DISORDER
     Route: 048
     Dates: start: 20030324
  7. RESTORAL [Concomitant]
  8. RESTORIL [Concomitant]
     Dosage: 7.5 MG TO 15 MG
     Dates: start: 20030422
  9. PROZAC [Concomitant]

REACTIONS (5)
  - HEART RATE IRREGULAR [None]
  - BLOOD TRIGLYCERIDES INCREASED [None]
  - HAEMORRHAGE [None]
  - TYPE 2 DIABETES MELLITUS [None]
  - HYPERTENSION [None]
